FAERS Safety Report 7135563-9 (Version None)
Quarter: 2010Q4

REPORT INFORMATION
  Report Type: 
  Country: None (occurrence: None)
  Receive Date: 20101203
  Receipt Date: 20100920
  Transmission Date: 20110411
  Serious: No
  Sender: FDA-Public Use
  Company Number: US-BRISTOL-MYERS SQUIBB COMPANY-15294721

PATIENT
  Age: 66 Year
  Sex: Female

DRUGS (1)
  1. KENALOG [Suspect]

REACTIONS (4)
  - CONFUSIONAL STATE [None]
  - DYSPNOEA [None]
  - PRURITUS [None]
  - URTICARIA [None]
